FAERS Safety Report 8924293 (Version 1)
Quarter: 2012Q4

REPORT INFORMATION
  Report Type: Spontaneous
  Country: US (occurrence: None)
  Receive Date: 20121121
  Receipt Date: 20121121
  Transmission Date: 20130627
  Serious: Yes (Hospitalization)
  Sender: FDA-Public Use
  Company Number: None

PATIENT
  Sex: Female

DRUGS (1)
  1. ACTEMRA [Suspect]
     Indication: RA
     Dosage: 309MG   Q4W   IV
     Route: 042
     Dates: start: 201208, end: 201209

REACTIONS (3)
  - Asthma [None]
  - Wheezing [None]
  - Joint swelling [None]
